FAERS Safety Report 12122000 (Version 1)
Quarter: 2016Q1

REPORT INFORMATION
  Report Type: Spontaneous
  Country: US (occurrence: US)
  Receive Date: 20160226
  Receipt Date: 20160226
  Transmission Date: 20160526
  Serious: No
  Sender: FDA-Public Use
  Company Number: US-ALLERGAN-1509567US

PATIENT
  Sex: Male

DRUGS (3)
  1. REFRESH OPTIVE [Suspect]
     Active Substance: CARBOXYMETHYLCELLULOSE SODIUM\GLYCERIN
     Indication: DRY EYE
  2. REFRESH OPTIVE [Suspect]
     Active Substance: CARBOXYMETHYLCELLULOSE SODIUM\GLYCERIN
     Indication: EYE IRRITATION
     Dosage: UNK, PRN
     Route: 031
  3. BABY ASPIRIN [Concomitant]
     Active Substance: ASPIRIN
     Indication: PRODUCT USED FOR UNKNOWN INDICATION
     Dosage: 1/2 TABLET, QD
     Route: 048

REACTIONS (3)
  - Foreign body sensation in eyes [Not Recovered/Not Resolved]
  - Dry eye [Not Recovered/Not Resolved]
  - Eye irritation [Not Recovered/Not Resolved]
